FAERS Safety Report 11678380 (Version 2)
Quarter: 2017Q1

REPORT INFORMATION
  Report Type: Spontaneous
  Country: US (occurrence: US)
  Receive Date: 20151028
  Receipt Date: 20170307
  Transmission Date: 20170428
  Serious: Yes (Death, Hospitalization, Other)
  Sender: FDA-Public Use
  Company Number: US-GLAXOSMITHKLINE-US2015GSK153813

PATIENT
  Sex: Female

DRUGS (1)
  1. WELLBUTRIN [Suspect]
     Active Substance: BUPROPION HYDROCHLORIDE
     Indication: CYSTIC LYMPHANGIOMA
     Dosage: UNK
     Route: 064

REACTIONS (8)
  - Heart disease congenital [Unknown]
  - Foetal exposure during pregnancy [Unknown]
  - Transposition of the great vessels [Fatal]
  - Congenital coronary artery malformation [Fatal]
  - Univentricular heart [Fatal]
  - Pulmonary artery stenosis congenital [Fatal]
  - Interruption of aortic arch [Fatal]
  - Aorta hypoplasia [Fatal]
